FAERS Safety Report 13807241 (Version 2)
Quarter: 2017Q3

REPORT INFORMATION
  Report Type: Spontaneous
  Country: US (occurrence: US)
  Receive Date: 20170728
  Receipt Date: 20170815
  Transmission Date: 20171127
  Serious: No
  Sender: FDA-Public Use
  Company Number: US-PFIZER INC-2017321753

PATIENT
  Age: 53 Year
  Sex: Female

DRUGS (2)
  1. AROMASIN [Suspect]
     Active Substance: EXEMESTANE
     Indication: PROPHYLAXIS
  2. AROMASIN [Suspect]
     Active Substance: EXEMESTANE
     Indication: GENE MUTATION IDENTIFICATION TEST POSITIVE
     Dosage: 1 DF, 1X/DAY
     Dates: start: 201611, end: 201702

REACTIONS (4)
  - Osteoporosis [Not Recovered/Not Resolved]
  - Arthralgia [Recovered/Resolved]
  - Meniscus injury [Not Recovered/Not Resolved]
  - Fatigue [Recovered/Resolved]

NARRATIVE: CASE EVENT DATE: 201702
